FAERS Safety Report 15945554 (Version 3)
Quarter: 2019Q3

REPORT INFORMATION
  Report Type: Spontaneous
  Country: US (occurrence: US)
  Receive Date: 20190211
  Receipt Date: 20190827
  Transmission Date: 20191004
  Serious: Yes (Other)
  Sender: FDA-Public Use
  Company Number: US-SA-2019SA035311

PATIENT
  Age: 51 Year
  Sex: Female
  Weight: 95.2 kg

DRUGS (15)
  1. PERCOCET [Concomitant]
     Active Substance: ACETAMINOPHEN\OXYCODONE HYDROCHLORIDE
  2. CYTOXAN [Concomitant]
     Active Substance: CYCLOPHOSPHAMIDE
     Indication: BREAST CANCER
  3. TAXOTERE [Suspect]
     Active Substance: DOCETAXEL
     Indication: BREAST CANCER
     Dosage: 35 MG/M2, QW
     Route: 042
     Dates: start: 20010406, end: 20010406
  4. FUROSEMIDE. [Concomitant]
     Active Substance: FUROSEMIDE
  5. CELEBREX [Concomitant]
     Active Substance: CELECOXIB
  6. LEVAQUIN [Concomitant]
     Active Substance: LEVOFLOXACIN
  7. ZESTRIL [Concomitant]
     Active Substance: LISINOPRIL
  8. XANAX [Concomitant]
     Active Substance: ALPRAZOLAM
  9. NEOSAR [Concomitant]
     Active Substance: CYCLOPHOSPHAMIDE
     Indication: BREAST CANCER
     Dosage: UNK
  10. PRILOSEC [Concomitant]
     Active Substance: OMEPRAZOLE MAGNESIUM
  11. TAXOTERE [Suspect]
     Active Substance: DOCETAXEL
     Dosage: 35 MG/M2, QW
     Route: 042
     Dates: start: 20010720, end: 20010720
  12. ATENOLOL. [Concomitant]
     Active Substance: ATENOLOL
  13. SENOKOT-S [Concomitant]
     Active Substance: DOCUSATE SODIUM\SENNOSIDES
  14. ADRIAMYCIN [Concomitant]
     Active Substance: DOXORUBICIN HYDROCHLORIDE
     Indication: BREAST CANCER
     Dosage: UNK
  15. LEVOXYL [Concomitant]
     Active Substance: LEVOTHYROXINE SODIUM

REACTIONS (2)
  - Psychological trauma [Unknown]
  - Alopecia [Not Recovered/Not Resolved]

NARRATIVE: CASE EVENT DATE: 200112
